FAERS Safety Report 6784545-5 (Version None)
Quarter: 2010Q2

REPORT INFORMATION
  Report Type: 
  Country: None (occurrence: None)
  Receive Date: 20100622
  Receipt Date: 20100614
  Transmission Date: 20101027
  Serious: Yes (Hospitalization)
  Sender: FDA-Public Use
  Company Number: GB-BRISTOL-MYERS SQUIBB COMPANY-15156904

PATIENT
  Age: 78 Year
  Sex: Female

DRUGS (2)
  1. CARBIDOPA + LEVODOPA [Suspect]
     Indication: PARKINSON'S DISEASE
     Dosage: THERAPY WITH CARBIDOPA + LEVADOPA WAS DISCONTINUED ON APPROXIMATELY 11-MAY-2010.
     Route: 048
     Dates: end: 20100501
  2. CARBIDOPA + LEVODOPA CR [Suspect]
     Indication: PARKINSON'S DISEASE
     Dosage: FORMULATION TABS
     Dates: start: 20100501

REACTIONS (1)
  - GENERAL SYMPTOM [None]
